FAERS Safety Report 11813171 (Version 1)
Quarter: 2015Q4

REPORT INFORMATION
  Report Type: Spontaneous
  Country: CA (occurrence: CA)
  Receive Date: 20151209
  Receipt Date: 20151209
  Transmission Date: 20160305
  Serious: Yes (Other)
  Sender: FDA-Public Use
  Company Number: CA-TEVA-613967ACC

PATIENT
  Age: 44 Year
  Sex: Female

DRUGS (2)
  1. HYDRALAZINE HYDROCHLORIDE INJECTION,USP [Suspect]
     Active Substance: HYDRALAZINE HYDROCHLORIDE
     Indication: HYPERTENSIVE CRISIS
     Dosage: SOLUTION INTRAVENOUS, 5.0 MILLIGRAM TOTAL
     Route: 042
  2. IBUPROFEN. [Suspect]
     Active Substance: IBUPROFEN
     Indication: PRODUCT USED FOR UNKNOWN INDICATION
     Route: 065

REACTIONS (2)
  - Dysgeusia [Unknown]
  - Palpitations [Unknown]
